FAERS Safety Report 7773121-3 (Version None)
Quarter: 2011Q3

REPORT INFORMATION
  Report Type: 
  Country: None (occurrence: None)
  Receive Date: 20110922
  Receipt Date: 20110516
  Transmission Date: 20111222
  Serious: Yes (Hospitalization)
  Sender: FDA-Public Use
  Company Number: US-ASTRAZENECA-2009UW03142

PATIENT
  Age: 11530 Day
  Sex: Male
  Weight: 65.8 kg

DRUGS (14)
  1. SEROQUEL [Suspect]
     Route: 048
     Dates: start: 20051212
  2. ABILIFY [Concomitant]
  3. SEROQUEL [Suspect]
     Indication: BIPOLAR DISORDER
     Route: 048
     Dates: start: 20010101, end: 20040301
  4. GEODON [Concomitant]
     Dosage: 60 MG, 80 MG DISPENSED
     Dates: start: 20051210
  5. RISPERDAL [Concomitant]
  6. LOVASTATIN [Concomitant]
     Dosage: 10 MG ONE TABLET IN EVENING
     Dates: start: 20080303
  7. SEROQUEL [Suspect]
     Indication: DEPRESSION
     Route: 048
     Dates: start: 20010101, end: 20040301
  8. CITALOPRAM HYDROBROMIDE [Concomitant]
     Dates: start: 20051210
  9. EPITOL [Concomitant]
     Dates: start: 20051210
  10. VALIUM [Concomitant]
     Dates: start: 20080303
  11. THORAZINE [Concomitant]
  12. ZOLOFT [Concomitant]
  13. SEROQUEL [Suspect]
     Route: 048
     Dates: start: 20051212
  14. CHLORPROMAZINE [Concomitant]
     Dates: start: 20060912

REACTIONS (2)
  - DIABETIC KETOACIDOSIS [None]
  - TYPE 2 DIABETES MELLITUS [None]
